FAERS Safety Report 12373249 (Version 2)
Quarter: 2016Q2

REPORT INFORMATION
  Report Type: Spontaneous
  Country: KR (occurrence: KR)
  Receive Date: 20160516
  Receipt Date: 20160523
  Transmission Date: 20160815
  Serious: Yes (Other)
  Sender: FDA-Public Use
  Company Number: KR-009507513-1605KOR007800

PATIENT
  Age: 56 Year
  Sex: Male
  Weight: 61.2 kg

DRUGS (15)
  1. GASMOTIN [Concomitant]
     Active Substance: MOSAPRIDE CITRATE
     Indication: PROPHYLAXIS AGAINST GASTROINTESTINAL ULCER
     Dosage: 3 DF, TID
     Route: 048
  2. DEX (DEXAMETHASONE SODIUM PHOSPHATE) [Concomitant]
     Indication: PREMEDICATION
     Dosage: 10 MG, QD (FREQUENCY: 1)
     Route: 042
     Dates: start: 20150420, end: 20150423
  3. TAMIPOOL [Concomitant]
     Active Substance: VITAMINS
     Indication: PROPHYLAXIS
     Dosage: 2 VIAL, QD (FREQUENCY: 1)
     Route: 042
     Dates: start: 20150429, end: 20150501
  4. LASIX [Concomitant]
     Active Substance: FUROSEMIDE
     Indication: PROPHYLAXIS
     Dosage: 20 MG, QD (FREQUENCY: 1)
     Route: 042
     Dates: start: 20150420, end: 20150420
  5. DENOGAN [Concomitant]
     Indication: PAIN PROPHYLAXIS
     Dosage: 2 G, QD (FREQUENCY: 1)
     Route: 042
     Dates: start: 20150428, end: 20160428
  6. TAXOTERE [Concomitant]
     Active Substance: DOCETAXEL
     Indication: CHEMOTHERAPY
  7. FLUOROURACIL. [Concomitant]
     Active Substance: FLUOROURACIL
     Indication: TONSIL CANCER
     Dosage: 1200 MG, QD (FREUQENCY: 1), (CYCLE: 1)
     Route: 042
     Dates: start: 20150420, end: 20150423
  8. KYTRIL [Concomitant]
     Active Substance: GRANISETRON HYDROCHLORIDE
     Indication: PREMEDICATION
     Dosage: 1 MG, QD (FREQUENCY: 1)
     Route: 042
     Dates: start: 20150420, end: 20150420
  9. FLUOROURACIL. [Concomitant]
     Active Substance: FLUOROURACIL
     Indication: CHEMOTHERAPY
  10. AMODIPIN [Concomitant]
     Indication: HYPERTENSION
     Dosage: 5 MG, QD (FREQUENCY: 1)
     Route: 048
  11. EMEND (FOSAPREPITANT DIMEGLUMINE) [Suspect]
     Active Substance: FOSAPREPITANT DIMEGLUMINE
     Indication: PROPHYLAXIS OF NAUSEA AND VOMITING
     Dosage: 150 MG, ONCE
     Route: 042
     Dates: start: 20150422, end: 20150422
  12. TAXOTERE [Concomitant]
     Active Substance: DOCETAXEL
     Indication: TONSIL CANCER
     Dosage: 100 MG, QD (FREQUENCY: 1) (CYCLE: 1)
     Route: 042
     Dates: start: 20150420, end: 20150420
  13. CISPLAN [Concomitant]
     Active Substance: CISPLATIN
     Indication: TONSIL CANCER
     Dosage: 100 MG, QD (FREQUENCY: 1) (CYCLE: 1)
     Route: 042
     Dates: start: 20150420, end: 20150420
  14. CISPLAN [Concomitant]
     Active Substance: CISPLATIN
     Indication: CHEMOTHERAPY
  15. SODIUM CHLORIDE. [Concomitant]
     Active Substance: SODIUM CHLORIDE
     Indication: HYPONATRAEMIA
     Dosage: 40 ML, QD (FREQUENCY: 1)
     Route: 042
     Dates: start: 20150427, end: 20150427

REACTIONS (9)
  - Neutropenia [Recovered/Resolved]
  - Stomatitis [Recovered/Resolved]
  - Nausea [Recovered/Resolved]
  - Febrile neutropenia [Recovered/Resolved]
  - Cough [Recovered/Resolved]
  - Blood sodium abnormal [Unknown]
  - Pain [Recovered/Resolved]
  - Constipation [Recovered/Resolved]
  - Headache [Recovered/Resolved]

NARRATIVE: CASE EVENT DATE: 20150422
